FAERS Safety Report 16695255 (Version 1)
Quarter: 2019Q3

REPORT INFORMATION
  Report Type: Spontaneous
  Country: US (occurrence: US)
  Receive Date: 20190813
  Receipt Date: 20190813
  Transmission Date: 20191004
  Serious: Yes (Other)
  Sender: FDA-Public Use
  Company Number: US-BRISTOL-MYERS SQUIBB COMPANY-BMS-2019-076873

PATIENT

DRUGS (2)
  1. COUMADIN [Suspect]
     Active Substance: WARFARIN SODIUM
     Indication: PROTEIN S DEFICIENCY
     Route: 065
  2. COUMADIN [Suspect]
     Active Substance: WARFARIN SODIUM
     Indication: PROTEIN C DEFICIENCY
     Dosage: UNAVAILABLE
     Route: 065

REACTIONS (3)
  - Intentional product use issue [Unknown]
  - Thrombosis [Unknown]
  - International normalised ratio abnormal [Unknown]
